FAERS Safety Report 18445787 (Version 1)
Quarter: 2020Q4

REPORT INFORMATION
  Report Type: Spontaneous
  Country: US (occurrence: US)
  Receive Date: 20201030
  Receipt Date: 20201030
  Transmission Date: 20210114
  Serious: Yes (Other)
  Sender: FDA-Public Use
  Company Number: US-JNJFOC-20201042352

PATIENT
  Age: 72 Year
  Sex: Female

DRUGS (1)
  1. XARELTO [Suspect]
     Active Substance: RIVAROXABAN
     Indication: PRODUCT USED FOR UNKNOWN INDICATION
     Dosage: SERIAL NUMBER: 100019625607
     Route: 048

REACTIONS (5)
  - Haemorrhage [Unknown]
  - Contusion [Unknown]
  - Epistaxis [Unknown]
  - Dehydration [Unknown]
  - Vein discolouration [Unknown]

NARRATIVE: CASE EVENT DATE: 202010
